FAERS Safety Report 9184519 (Version 1)
Quarter: 2013Q1

REPORT INFORMATION
  Report Type: Spontaneous
  Country: US (occurrence: US)
  Receive Date: 20130322
  Receipt Date: 20130322
  Transmission Date: 20140127
  Serious: No
  Sender: FDA-Public Use
  Company Number: US-BAYER-2013-036457

PATIENT
  Age: 75 Year
  Sex: Male
  Weight: 95.24 kg

DRUGS (4)
  1. ALEVE TABLET [Suspect]
     Indication: ARTHRITIS
     Dosage: 1 DF, BID
     Route: 048
     Dates: start: 200703
  2. BAYER ASPIRIN REGIMEN ADULT LOW STRENGTH [Concomitant]
     Dosage: UNK
  3. ANTIHYPERTENSIVES [Concomitant]
     Dosage: UNK
  4. HEART RHYTHM PILL [Concomitant]
     Dosage: UNK

REACTIONS (1)
  - Incorrect drug administration duration [None]
